FAERS Safety Report 8693943 (Version 2)
Quarter: 2013Q2

REPORT INFORMATION
  Report Type: Spontaneous
  Country: US (occurrence: US)
  Receive Date: 20120731
  Receipt Date: 20130523
  Transmission Date: 20140414
  Serious: Yes (Hospitalization, Other)
  Sender: FDA-Public Use
  Company Number: US-PFIZER INC-2012181334

PATIENT
  Age: 43 Year
  Sex: Female

DRUGS (2)
  1. CHANTIX [Suspect]
     Dosage: UNK
     Dates: start: 20090826, end: 20091022
  2. CHANTIX [Suspect]
     Dosage: 1 MG
     Dates: start: 20090922

REACTIONS (5)
  - Intentional overdose [Unknown]
  - Suicide attempt [Unknown]
  - Depression [Unknown]
  - Anxiety [Unknown]
  - Abnormal dreams [Unknown]
